FAERS Safety Report 6834779-6 (Version None)
Quarter: 2010Q3

REPORT INFORMATION
  Report Type: 
  Country: None (occurrence: None)
  Receive Date: 20100712
  Receipt Date: 20070601
  Transmission Date: 20110219
  Serious: No
  Sender: FDA-Public Use
  Company Number: US-PFIZER INC-2007022563

PATIENT
  Sex: Male
  Weight: 58.1 kg

DRUGS (4)
  1. VARENICLINE [Suspect]
     Indication: SMOKING CESSATION THERAPY
     Route: 048
     Dates: start: 20070203, end: 20070309
  2. PLAVIX [Concomitant]
     Route: 048
  3. LIPITOR [Concomitant]
     Route: 048
     Dates: start: 20070101
  4. TICLID [Concomitant]

REACTIONS (2)
  - DIARRHOEA [None]
  - FEELING ABNORMAL [None]
